FAERS Safety Report 6685409-8 (Version None)
Quarter: 2010Q2

REPORT INFORMATION
  Report Type: 
  Country: None (occurrence: None)
  Receive Date: 20100418
  Receipt Date: 20100413
  Transmission Date: 20101027
  Serious: Yes (Other)
  Sender: FDA-Public Use
  Company Number: PHHY2010FR23182

PATIENT
  Age: 22 Year
  Sex: Male

DRUGS (4)
  1. CYCLOSPORINE [Suspect]
     Indication: HEART TRANSPLANT
     Dosage: UNK
     Route: 042
  2. CYCLOSPORINE [Suspect]
     Dosage: 5 MG/KG, PER DAY
     Route: 048
  3. CORTISONE [Suspect]
     Indication: HEART TRANSPLANT
     Dosage: 1 MG/KG, UNK
  4. ANTITHYMOCYTE IMMUNOGLOBULIN [Concomitant]
     Indication: HEART TRANSPLANT
     Dosage: UNK
     Route: 042

REACTIONS (4)
  - CEREBRAL ISCHAEMIA [None]
  - GRAND MAL CONVULSION [None]
  - HEMIPLEGIA [None]
  - REVERSIBLE POSTERIOR LEUKOENCEPHALOPATHY SYNDROME [None]
